FAERS Safety Report 19499932 (Version 1)
Quarter: 2021Q3

REPORT INFORMATION
  Report Type: Spontaneous
  Country: JP (occurrence: JP)
  Receive Date: 20210707
  Receipt Date: 20210707
  Transmission Date: 20211014
  Serious: Yes (Other)
  Sender: FDA-Public Use
  Company Number: JP-SA-2021SA207269

PATIENT
  Age: 76 Year
  Sex: Female

DRUGS (1)
  1. SARCLISA [Suspect]
     Active Substance: ISATUXIMAB-IRFC
     Indication: PLASMA CELL MYELOMA
     Dosage: QW
     Route: 041
     Dates: start: 20210526, end: 20210619

REACTIONS (3)
  - Serositis [Recovered/Resolved]
  - Pericardial effusion [Recovered/Resolved]
  - Pleural thickening [Recovered/Resolved]

NARRATIVE: CASE EVENT DATE: 20210616
